FAERS Safety Report 21065397 (Version 2)
Quarter: 2022Q3

REPORT INFORMATION
  Report Type: Spontaneous
  Country: US (occurrence: US)
  Receive Date: 20220711
  Receipt Date: 20220713
  Transmission Date: 20221026
  Serious: Yes (Other)
  Sender: FDA-Public Use
  Company Number: US-ALLERGAN-2218824US

PATIENT
  Sex: Female
  Weight: 79.378 kg

DRUGS (3)
  1. LINZESS [Suspect]
     Active Substance: LINACLOTIDE
     Indication: Constipation
     Dosage: 290 ?G
     Route: 048
     Dates: start: 2016
  2. LINZESS [Suspect]
     Active Substance: LINACLOTIDE
     Indication: Faecaloma
     Dosage: 145 ?G, QD
     Route: 048
     Dates: start: 2016, end: 2016
  3. COVID-19 VACCINE NOS [Suspect]
     Active Substance: COVID-19 VACCINE NOS
     Indication: COVID-19 immunisation
     Dosage: UNK, SINGLE
     Route: 030
     Dates: start: 20210327, end: 20210327

REACTIONS (7)
  - Cardiac failure [Not Recovered/Not Resolved]
  - Breast cancer [Recovered/Resolved]
  - COVID-19 [Recovered/Resolved]
  - Decreased appetite [Recovered/Resolved]
  - Product dispensing error [Unknown]
  - Abdominal discomfort [Recovered/Resolved]
  - Drug ineffective [Unknown]

NARRATIVE: CASE EVENT DATE: 20160101
